FAERS Safety Report 8702274 (Version 3)
Quarter: 2012Q4

REPORT INFORMATION
  Report Type: 
  Country: US (occurrence: US)
  Receive Date: 20120803
  Receipt Date: 20121129
  Transmission Date: 20130627
  Serious: Yes (Death, Hospitalization)
  Sender: FDA-Public Use
  Company Number: US-ELI_LILLY_AND_COMPANY-US201207008724

PATIENT
  Sex: Female
  Weight: 40.36 kg

DRUGS (5)
  1. ALIMTA [Suspect]
     Indication: LUNG NEOPLASM MALIGNANT
     Dosage: UNK
     Dates: start: 20111116, end: 20120119
  2. VITAMIN B12 [Concomitant]
     Dosage: 1000 mg, UNK
  3. CARBOPLATIN [Concomitant]
  4. ALOXI [Concomitant]
  5. DEXAMETHASONE SODIUM [Concomitant]

REACTIONS (4)
  - Lung neoplasm malignant [Fatal]
  - Chronic obstructive pulmonary disease [Unknown]
  - Ill-defined disorder [Unknown]
  - Herpes zoster [Unknown]
